FAERS Safety Report 13493469 (Version 1)
Quarter: 2017Q2

REPORT INFORMATION
  Report Type: Spontaneous
  Country: US (occurrence: US)
  Receive Date: 20170427
  Receipt Date: 20170427
  Transmission Date: 20170830
  Serious: No
  Sender: FDA-Public Use
  Company Number: US-ROCHE-1312780

PATIENT
  Sex: Male

DRUGS (3)
  1. ERIVEDGE [Suspect]
     Active Substance: VISMODEGIB
     Indication: BASAL CELL CARCINOMA
     Route: 048
     Dates: start: 20131103
  2. VICODIN [Concomitant]
     Active Substance: ACETAMINOPHEN\HYDROCODONE BITARTRATE
  3. OXYCODONE/ACETAMINOPHEN [Concomitant]
     Active Substance: ACETAMINOPHEN\OXYCODONE HYDROCHLORIDE

REACTIONS (9)
  - Ageusia [Unknown]
  - Hair growth abnormal [Unknown]
  - Weight decreased [Unknown]
  - Alopecia [Unknown]
  - Decreased appetite [Unknown]
  - Pruritus [Unknown]
  - Nausea [Unknown]
  - Muscle spasms [Unknown]
  - Fatigue [Unknown]
